FAERS Safety Report 6653477-5 (Version None)
Quarter: 2010Q1

REPORT INFORMATION
  Report Type: 
  Country: None (occurrence: None)
  Receive Date: 20100326
  Receipt Date: 20100323
  Transmission Date: 20100710
  Serious: Yes (Hospitalization)
  Sender: FDA-Public Use
  Company Number: US-ROXANE LABORATORIES, INC.-2010-RO-00325RO

PATIENT
  Age: 48 Year
  Sex: Female

DRUGS (6)
  1. ALPRAZOLAM INTENSOL [ORAL SOLUTION (CONCENTRATE)] 1 MG/ML [Suspect]
     Indication: ANXIETY
  2. ETANERCEPT [Suspect]
     Indication: RHEUMATOID ARTHRITIS
  3. OXYBUTYNIN [Suspect]
     Indication: URINARY INCONTINENCE
  4. ANTIBIIOTICS [Concomitant]
     Indication: PRODUCTIVE COUGH
  5. PREDNISONE TAB [Concomitant]
     Indication: PULMONARY GRANULOMA
     Dosage: 40 MG
  6. OXYGEN [Concomitant]
     Indication: DYSPNOEA
     Route: 055

REACTIONS (5)
  - DYSPNOEA [None]
  - FATIGUE [None]
  - PRODUCTIVE COUGH [None]
  - PULMONARY GRANULOMA [None]
  - PYREXIA [None]
